FAERS Safety Report 11362940 (Version 1)
Quarter: 2015Q3

REPORT INFORMATION
  Report Type: Spontaneous
  Country: US (occurrence: US)
  Receive Date: 20150810
  Receipt Date: 20150810
  Transmission Date: 20151125
  Serious: No
  Sender: FDA-Public Use
  Company Number: US-FRESENIUS KABI-FK201503819

PATIENT
  Age: 54 Year
  Sex: Female

DRUGS (3)
  1. VERSED [Concomitant]
     Active Substance: MIDAZOLAM HYDROCHLORIDE
     Indication: KNEE OPERATION
     Route: 042
     Dates: start: 20150803, end: 20150803
  2. PROPOFOL INJECTABLE EMULSION 1% (PROPOFOL, PROPOFOL) (PROPOFOL, PROPOFOL) [Suspect]
     Active Substance: PROPOFOL
     Indication: KNEE OPERATION
     Route: 042
     Dates: start: 20150803, end: 20150803
  3. VICODIN [Concomitant]
     Active Substance: ACETAMINOPHEN\HYDROCODONE BITARTRATE
     Indication: PAIN
     Route: 048
     Dates: start: 20150803

REACTIONS (1)
  - Hypersensitivity [Recovering/Resolving]

NARRATIVE: CASE EVENT DATE: 20150803
